FAERS Safety Report 23184676 (Version 1)
Quarter: 2023Q4

REPORT INFORMATION
  Report Type: Spontaneous
  Country: US (occurrence: US)
  Receive Date: 20231115
  Receipt Date: 20231115
  Transmission Date: 20240110
  Serious: No
  Sender: FDA-Public Use
  Company Number: US-BEH-2021131431

PATIENT
  Age: 71 Year
  Sex: Female

DRUGS (2)
  1. HIZENTRA [Suspect]
     Active Substance: HUMAN IMMUNOGLOBULIN G
     Indication: Immunodeficiency common variable
     Dosage: UNK
     Route: 058
     Dates: start: 2014
  2. HIZENTRA [Suspect]
     Active Substance: HUMAN IMMUNOGLOBULIN G
     Indication: Primary immunodeficiency syndrome

REACTIONS (4)
  - Mental disorder [Not Recovered/Not Resolved]
  - Fall [Not Recovered/Not Resolved]
  - Soft tissue injury [Not Recovered/Not Resolved]
  - Quality of life decreased [Unknown]

NARRATIVE: CASE EVENT DATE: 20200101
